FAERS Safety Report 19792157 (Version 6)
Quarter: 2022Q3

REPORT INFORMATION
  Report Type: Other
  Country: GB (occurrence: None)
  Receive Date: 20210906
  Receipt Date: 20220711
  Transmission Date: 20221027
  Serious: Yes (Hospitalization)
  Sender: FDA-Public Use
  Company Number: GB-ROCHE-2894976

PATIENT
  Age: 45 Year
  Sex: Female
  Weight: 64.9 kg

DRUGS (35)
  1. ATEZOLIZUMAB [Suspect]
     Active Substance: ATEZOLIZUMAB
     Indication: Small cell lung cancer extensive stage
     Dosage: DOSE LAST STUDY DRUG ADMIN PRIOR AE AND SAE: 1680 MG?START DATE /END OF MOST RECENT DOSE OF STUDY DR
     Route: 042
     Dates: start: 20210401
  2. ETOPOSIDE [Suspect]
     Active Substance: ETOPOSIDE
     Indication: Small cell lung cancer extensive stage
     Route: 042
     Dates: start: 20210311
  3. ETOPOSIDE [Suspect]
     Active Substance: ETOPOSIDE
     Route: 048
     Dates: start: 20210402
  4. ETOPOSIDE [Suspect]
     Active Substance: ETOPOSIDE
     Route: 065
     Dates: start: 20210402
  5. CARBOPLATIN [Suspect]
     Active Substance: CARBOPLATIN
     Indication: Small cell lung cancer extensive stage
     Route: 065
     Dates: start: 20210311
  6. METOCLOPRAMIDE [Concomitant]
     Active Substance: METOCLOPRAMIDE
     Dates: start: 20210401
  7. CYCLIZINE [Concomitant]
     Active Substance: CYCLIZINE
     Dates: start: 20210422
  8. ALBUTEROL [Concomitant]
     Active Substance: ALBUTEROL
     Dates: start: 20210118
  9. PREDNISOLONE [Concomitant]
     Active Substance: PREDNISOLONE
     Dates: start: 20210506
  10. BECLOMETHASONE\FORMOTEROL [Concomitant]
     Active Substance: BECLOMETHASONE\FORMOTEROL
     Dates: start: 20210104
  11. MORPHINE SULFATE [Concomitant]
     Active Substance: MORPHINE SULFATE
     Dates: start: 20210506
  12. BUPRENORPHINE [Concomitant]
     Active Substance: BUPRENORPHINE
     Dosage: EVERY WEEK
     Dates: start: 20210319
  13. FILGRASTIM [Concomitant]
     Active Substance: FILGRASTIM
     Dates: start: 20210314
  14. LEVOFLOXACIN [Concomitant]
     Active Substance: LEVOFLOXACIN
     Dates: start: 20210318
  15. DIFLAM [Concomitant]
     Dates: start: 20210311
  16. CHLORHEXIDINE [Concomitant]
     Active Substance: CHLORHEXIDINE
     Dates: start: 20210311
  17. PREDNISOLONE [Concomitant]
     Active Substance: PREDNISOLONE
     Dates: start: 202105
  18. ACETAMINOPHEN [Concomitant]
     Active Substance: ACETAMINOPHEN
     Dates: start: 20210625
  19. DEXAMETHASONE [Concomitant]
     Active Substance: DEXAMETHASONE
     Dates: start: 20210625
  20. DEXAMETHASONE [Concomitant]
     Active Substance: DEXAMETHASONE
     Dates: start: 20210818
  21. OMEPRAZOLE [Concomitant]
     Active Substance: OMEPRAZOLE
     Dates: start: 20210625
  22. FLUCONAZOLE [Concomitant]
     Active Substance: FLUCONAZOLE
     Dates: start: 20210712
  23. COTRIMOXAZOLE [Concomitant]
     Active Substance: SULFAMETHOXAZOLE\TRIMETHOPRIM
     Dates: start: 20210711
  24. LEVOTHYROXINE [Concomitant]
     Active Substance: LEVOTHYROXINE
  25. PROPRANOLOL HYDROCHLORIDE [Concomitant]
     Active Substance: PROPRANOLOL HYDROCHLORIDE
     Dates: start: 20210506
  26. AMLODIPINE [Concomitant]
     Active Substance: AMLODIPINE BESYLATE
     Dates: start: 20210312
  27. INSULIN NOS [Concomitant]
     Active Substance: INSULIN NOS
     Dates: start: 20210818
  28. SPIRONOLACTONE [Concomitant]
     Active Substance: SPIRONOLACTONE
     Dates: start: 20210817
  29. POTASSIUM BICARBONATE\POTASSIUM CHLORIDE [Concomitant]
     Active Substance: POTASSIUM BICARBONATE\POTASSIUM CHLORIDE
     Dates: start: 20210817
  30. LEVEMIR [Concomitant]
     Active Substance: INSULIN DETEMIR
     Dates: start: 20210819
  31. DALTEPARIN [Concomitant]
     Active Substance: DALTEPARIN
     Indication: Prophylaxis
     Dates: start: 20210817
  32. ACYCLOVIR [Concomitant]
     Active Substance: ACYCLOVIR
  33. VANCOMYCIN [Concomitant]
     Active Substance: VANCOMYCIN
     Dates: start: 20210903, end: 20210907
  34. METRONIDAZOLE [Concomitant]
     Active Substance: METRONIDAZOLE
     Dates: start: 20210903, end: 20210907
  35. POTASSIUM CHLORIDE [Concomitant]
     Active Substance: POTASSIUM CHLORIDE
     Route: 042
     Dates: start: 20210902, end: 20210902

REACTIONS (2)
  - Diarrhoea [Not Recovered/Not Resolved]
  - Ectopic ACTH syndrome [Not Recovered/Not Resolved]

NARRATIVE: CASE EVENT DATE: 20210816
